FAERS Safety Report 19072391 (Version 1)
Quarter: 2021Q1

REPORT INFORMATION
  Report Type: Spontaneous
  Country: US (occurrence: US)
  Receive Date: 20210329
  Receipt Date: 20210329
  Transmission Date: 20210420
  Serious: No
  Sender: FDA-Public Use
  Company Number: None

PATIENT
  Age: 28 Year
  Sex: Male
  Weight: 86.4 kg

DRUGS (5)
  1. METHYLPHENIDATE ER 54MG TAB [Suspect]
     Active Substance: METHYLPHENIDATE HYDROCHLORIDE
     Indication: ATTENTION DEFICIT HYPERACTIVITY DISORDER
     Dosage: ?          QUANTITY:1 TABLET(S);?
     Route: 048
     Dates: start: 20210227, end: 20210329
  2. CONCERT [Concomitant]
  3. NAC [Concomitant]
  4. MAGNESIUM SUPPLEMENT AS MAGTEIN [Concomitant]
  5. OMEPRAZOLE. [Concomitant]
     Active Substance: OMEPRAZOLE

REACTIONS (3)
  - Therapeutic product effect incomplete [None]
  - Adverse drug reaction [None]
  - Therapeutic response changed [None]

NARRATIVE: CASE EVENT DATE: 20210301
